FAERS Safety Report 5009788-2 (Version None)
Quarter: 2006Q2

REPORT INFORMATION
  Report Type: 
  Country: None (occurrence: None)
  Receive Date: 20060523
  Receipt Date: 20060523
  Transmission Date: 20061013
  Serious: Yes (Hospitalization)
  Sender: FDA-Public Use
  Company Number: None

PATIENT
  Age: 71 Year
  Sex: Female
  Weight: 68.0396 kg

DRUGS (7)
  1. VELCADE [Suspect]
     Indication: GLIOBLASTOMA MULTIFORME
     Dosage: 1.72MG   DAYS1,4, 8 AND 11   IV
     Route: 042
     Dates: start: 20060508, end: 20060519
  2. VELCADE [Suspect]
     Indication: NEOPLASM RECURRENCE
     Dosage: 1.72MG   DAYS1,4, 8 AND 11   IV
     Route: 042
     Dates: start: 20060508, end: 20060519
  3. TEMODAR [Suspect]
     Dosage: 125MG   DAILY  PO
     Route: 048
     Dates: start: 20060508, end: 20060519
  4. DECADRON SRC [Concomitant]
  5. KEPPRA [Concomitant]
  6. GLYBURIDE [Concomitant]
  7. SYNTHROID [Concomitant]

REACTIONS (3)
  - ABDOMINAL PAIN [None]
  - BLOOD GLUCOSE DECREASED [None]
  - LOSS OF CONSCIOUSNESS [None]
